FAERS Safety Report 9339253 (Version 3)
Quarter: 2014Q2

REPORT INFORMATION
  Report Type: Report from Study
  Country: FR (occurrence: FR)
  Receive Date: 20130610
  Receipt Date: 20140603
  Transmission Date: 20141212
  Serious: Yes (Other)
  Sender: FDA-Public Use
  Company Number: FR-UCBSA-087226

PATIENT
  Age: 52 Year
  Sex: Female
  Weight: 47 kg

DRUGS (6)
  1. CERTOLIZUMAB PEGOL RA [Suspect]
     Indication: RHEUMATOID ARTHRITIS
     Dosage: 400 MG THEN 200 MG EVERY TWO WEEKS
     Route: 058
     Dates: start: 20120620, end: 20131003
  2. LANZOR [Concomitant]
     Indication: GASTRIC DISORDER
     Dosage: 15 MG, ONCE DAILY (QD)
     Route: 048
     Dates: start: 2006
  3. SPECIAFOLDINE [Concomitant]
     Indication: PROPHYLAXIS
     Dosage: 5 MG, WEEKLY (QW)
     Route: 048
     Dates: start: 2009
  4. NOVATREX [Concomitant]
     Indication: RHEUMATOID ARTHRITIS
     Dosage: 12.5 MG, WEEKLY (QW)
     Route: 048
     Dates: start: 20120801, end: 20130424
  5. NOVATREX [Concomitant]
     Dosage: 7.5 MG, WEEKLY (QW)
     Dates: start: 20130512, end: 201403
  6. KETUM [Concomitant]
     Indication: RHEUMATOID ARTHRITIS
     Dosage: 100 MG, 2X/DAY (BID)
     Route: 048
     Dates: start: 20120801

REACTIONS (1)
  - Periodontitis [Recovered/Resolved]
